APPROVED DRUG PRODUCT: PIOGLITAZONE HYDROCHLORIDE AND METFORMIN HYDROCHLORIDE
Active Ingredient: METFORMIN HYDROCHLORIDE; PIOGLITAZONE HYDROCHLORIDE
Strength: 500MG;EQ 15MG BASE
Dosage Form/Route: TABLET;ORAL
Application: A091155 | Product #001 | TE Code: AB
Applicant: TEVA PHARMACEUTICALS USA
Approved: Mar 10, 2014 | RLD: No | RS: No | Type: RX